FAERS Safety Report 8057157-3 (Version None)
Quarter: 2012Q1

REPORT INFORMATION
  Report Type: 
  Country: None (occurrence: None)
  Receive Date: 20120119
  Receipt Date: 20120116
  Transmission Date: 20120608
  Serious: Yes (Other)
  Sender: FDA-Public Use
  Company Number: US-ABBOTT-11P-163-0871885-00

PATIENT
  Sex: Female
  Weight: 67.646 kg

DRUGS (4)
  1. ATENOLOL [Concomitant]
     Indication: CARDIAC DISORDER
  2. OMEPRAZOLE [Concomitant]
     Indication: GASTROOESOPHAGEAL REFLUX DISEASE
  3. ASPIRIN [Concomitant]
     Indication: CARDIAC DISORDER
     Dosage: 81 MG DAILY
  4. TRILIPIX [Suspect]
     Indication: BLOOD CHOLESTEROL
     Dates: start: 20110414, end: 20110928

REACTIONS (3)
  - HAEMORRHOIDS [None]
  - ANAL PRURITUS [None]
  - ANAL FUNGAL INFECTION [None]
